FAERS Safety Report 5594755-0 (Version None)
Quarter: 2007Q4

REPORT INFORMATION
  Report Type: 
  Country: None (occurrence: None)
  Receive Date: 20071218
  Receipt Date: 20070315
  Transmission Date: 20080405
  Serious: Yes (Hospitalization, Other)
  Sender: FDA-Public Use
  Company Number: 2005155517

PATIENT
  Age: 67 Year
  Sex: Female

DRUGS (2)
  1. BEXTRA [Suspect]
     Indication: ARTHRALGIA
     Dosage: 10MG - 20 MG (1 IN 1 D),ORAL
     Route: 048
     Dates: start: 20020901
  2. BEXTRA [Suspect]
     Indication: ARTHRITIS
     Dosage: 10MG - 20 MG (1 IN 1 D),ORAL
     Route: 048
     Dates: start: 20020901

REACTIONS (1)
  - MYOCARDIAL INFARCTION [None]
